FAERS Safety Report 19028912 (Version 2)
Quarter: 2021Q2

REPORT INFORMATION
  Report Type: Spontaneous
  Country: US (occurrence: US)
  Receive Date: 20210319
  Receipt Date: 20210427
  Transmission Date: 20210717
  Serious: No
  Sender: FDA-Public Use
  Company Number: US-JNJFOC-20210332434

PATIENT
  Sex: Male

DRUGS (4)
  1. RISPERDAL CONSTA [Suspect]
     Active Substance: RISPERIDONE
  2. RISPERDAL CONSTA [Suspect]
     Active Substance: RISPERIDONE
  3. RISPERDAL CONSTA [Suspect]
     Active Substance: RISPERIDONE
     Indication: ACCIDENTAL EXPOSURE TO PRODUCT
     Route: 030
  4. RISPERDAL CONSTA [Suspect]
     Active Substance: RISPERIDONE

REACTIONS (2)
  - Accidental exposure to product [Unknown]
  - Syringe issue [Unknown]
